FAERS Safety Report 18940487 (Version 1)
Quarter: 2021Q1

REPORT INFORMATION
  Report Type: Spontaneous
  Country: US (occurrence: US)
  Receive Date: 20210225
  Receipt Date: 20210225
  Transmission Date: 20210420
  Serious: Yes (Hospitalization)
  Sender: FDA-Public Use
  Company Number: US-MYLANLABS-2021M1011454

PATIENT
  Age: 68 Year
  Sex: Female

DRUGS (2)
  1. ZICONOTIDE [Interacting]
     Active Substance: ZICONOTIDE
     Indication: BACK PAIN
     Dosage: 2.4 MICROGRAM, QD INTRATHECAL PUMP PLACEMENT WITH ZICONOTIDE INFUSION?
     Route: 037
  2. FLUOXETINE [Suspect]
     Active Substance: FLUOXETINE HYDROCHLORIDE
     Indication: DEPRESSION
     Dosage: 80 MILLIGRAM, QD
     Route: 065

REACTIONS (5)
  - Nystagmus [Recovered/Resolved]
  - Asthenia [Recovered/Resolved]
  - Toxicity to various agents [Recovered/Resolved]
  - Confusional state [Recovered/Resolved]
  - Potentiating drug interaction [Recovered/Resolved]
